FAERS Safety Report 22805506 (Version 2)
Quarter: 2023Q4

REPORT INFORMATION
  Report Type: Spontaneous
  Country: US (occurrence: US)
  Receive Date: 20230809
  Receipt Date: 20231015
  Transmission Date: 20240110
  Serious: Yes (Other)
  Sender: FDA-Public Use
  Company Number: US-JNJFOC-20230817107

PATIENT
  Age: 59 Year
  Sex: Female

DRUGS (2)
  1. STELARA [Suspect]
     Active Substance: USTEKINUMAB
     Indication: Psoriatic arthropathy
     Route: 058
     Dates: start: 202302
  2. STELARA [Suspect]
     Active Substance: USTEKINUMAB

REACTIONS (2)
  - Psoriatic arthropathy [Unknown]
  - Treatment failure [Unknown]

NARRATIVE: CASE EVENT DATE: 20230803
